FAERS Safety Report 19190998 (Version 1)
Quarter: 2021Q2

REPORT INFORMATION
  Report Type: Report from Study
  Country: CO (occurrence: CO)
  Receive Date: 20210428
  Receipt Date: 20210428
  Transmission Date: 20210717
  Serious: Yes (Other)
  Sender: FDA-Public Use
  Company Number: CO-ASTRAZENECA-2021A348305

PATIENT
  Age: 21252 Day
  Sex: Female
  Weight: 76 kg

DRUGS (1)
  1. SYMBICORT [Suspect]
     Active Substance: BUDESONIDE\FORMOTEROL FUMARATE DIHYDRATE
     Indication: ASTHMA
     Dosage: 160/4.5 UG/INHALATION, EVERY 12 HOURS
     Route: 055
     Dates: start: 20190819

REACTIONS (4)
  - Scab [Not Recovered/Not Resolved]
  - Hypersensitivity [Not Recovered/Not Resolved]
  - Noninfective sialoadenitis [Not Recovered/Not Resolved]
  - Tongue disorder [Not Recovered/Not Resolved]

NARRATIVE: CASE EVENT DATE: 20190819
